FAERS Safety Report 25608144 (Version 3)
Quarter: 2025Q3

REPORT INFORMATION
  Report Type: Report from Study
  Country: JP (occurrence: JP)
  Receive Date: 20250725
  Receipt Date: 20250811
  Transmission Date: 20251021
  Serious: No
  Sender: EISAI
  Company Number: JP-Eisai-202505140_LEQ_P_1

PATIENT
  Age: 78 Year
  Sex: Female
  Weight: 47.5 kg

DRUGS (12)
  1. LEQEMBI [Suspect]
     Active Substance: LECANEMAB-IRMB
     Indication: Cognitive disorder
     Dates: start: 20241228, end: 20250621
  2. LANSOPRAZOLE [Concomitant]
     Active Substance: LANSOPRAZOLE
  3. MONTELUKAST [Concomitant]
     Active Substance: MONTELUKAST
  4. NIFEDIPINE [Concomitant]
     Active Substance: NIFEDIPINE
  5. SIMVASTATIN [Concomitant]
     Active Substance: SIMVASTATIN
  6. FLUTICASONE FUROATE\VILANTEROL TRIFENATATE [Concomitant]
     Active Substance: FLUTICASONE FUROATE\VILANTEROL TRIFENATATE
  7. BISOPROLOL FUMARATE [Concomitant]
     Active Substance: BISOPROLOL FUMARATE
  8. REBAMIPIDE [Concomitant]
     Active Substance: REBAMIPIDE
  9. NESINA [Concomitant]
     Active Substance: ALOGLIPTIN BENZOATE
  10. NASONEX [Concomitant]
     Active Substance: MOMETASONE FUROATE
  11. OLOPATADINE [Concomitant]
     Active Substance: OLOPATADINE
  12. BEPOTASTINE BESILATE [Concomitant]
     Active Substance: BEPOTASTINE BESILATE

REACTIONS (1)
  - Amyloid related imaging abnormality-microhaemorrhages and haemosiderin deposits [Unknown]

NARRATIVE: CASE EVENT DATE: 20250101
